FAERS Safety Report 14551321 (Version 2)
Quarter: 2018Q2

REPORT INFORMATION
  Report Type: Report from Study
  Country: DE (occurrence: DE)
  Receive Date: 20180220
  Receipt Date: 20180404
  Transmission Date: 20180711
  Serious: Yes (Other)
  Sender: FDA-Public Use
  Company Number: DE-ROCHE-2070559

PATIENT
  Age: 62 Year
  Sex: Male

DRUGS (5)
  1. SOFOSBUVIR [Suspect]
     Active Substance: SOFOSBUVIR
     Indication: PRODUCT USED FOR UNKNOWN INDICATION
     Route: 065
  2. EXVIERA [Suspect]
     Active Substance: DASABUVIR
     Indication: CHRONIC HEPATITIS C
     Dosage: MOST RECENT DOSE WAS TAKEN ON 09/NOV/2016
     Route: 048
     Dates: start: 20160523
  3. VIEKIRAX [Suspect]
     Active Substance: OMBITASVIR\PARITAPREVIR\RITONAVIR
     Indication: CHRONIC HEPATITIS C
     Dosage: MOST RECENT DOSE WAS TAKEN ON 09/NOV/2016
     Route: 048
     Dates: start: 20160523
  4. RIBAVIRIN. [Suspect]
     Active Substance: RIBAVIRIN
     Dosage: MOST RECENT DOSE WAS TAKEN ON 09/NOV/2016
     Route: 048
     Dates: start: 20160721
  5. RIBAVIRIN. [Suspect]
     Active Substance: RIBAVIRIN
     Indication: CHRONIC HEPATITIS C
     Route: 048
     Dates: start: 20160523, end: 20160608

REACTIONS (5)
  - Feeling abnormal [Unknown]
  - Gastroenteritis [Unknown]
  - Hepatocellular carcinoma [Unknown]
  - Haemoglobin decreased [Unknown]
  - Fatigue [Unknown]

NARRATIVE: CASE EVENT DATE: 20160601
